FAERS Safety Report 18433207 (Version 5)
Quarter: 2021Q1

REPORT INFORMATION
  Report Type: Spontaneous
  Country: US (occurrence: US)
  Receive Date: 20201027
  Receipt Date: 20210125
  Transmission Date: 20210419
  Serious: No
  Sender: FDA-Public Use
  Company Number: US-PFIZER INC-2020413853

PATIENT
  Age: 49 Year
  Sex: Female

DRUGS (1)
  1. IBRANCE [Suspect]
     Active Substance: PALBOCICLIB
     Indication: METASTASES TO PLEURA
     Dosage: 125 MG

REACTIONS (7)
  - Abdominal pain upper [Recovered/Resolved]
  - Vomiting [Unknown]
  - Rash [Not Recovered/Not Resolved]
  - Hypoaesthesia [Recovered/Resolved]
  - Headache [Not Recovered/Not Resolved]
  - Photopsia [Not Recovered/Not Resolved]
  - Dizziness [Unknown]

NARRATIVE: CASE EVENT DATE: 20201106
